FAERS Safety Report 9746155 (Version 1)
Quarter: 2013Q4

REPORT INFORMATION
  Report Type: Spontaneous
  Country: GB (occurrence: GB)
  Receive Date: 20131211
  Receipt Date: 20131211
  Transmission Date: 20140711
  Serious: No
  Sender: FDA-Public Use
  Company Number: GB-GILEAD-2009-0025976

PATIENT
  Sex: Male

DRUGS (3)
  1. ATRIPLA [Suspect]
  2. TRUVADA [Concomitant]
  3. EFAVIRENZ [Concomitant]

REACTIONS (2)
  - Abnormal dreams [Unknown]
  - Nightmare [Unknown]
